FAERS Safety Report 12646526 (Version 2)
Quarter: 2018Q3

REPORT INFORMATION
  Report Type: Spontaneous
  Country: US (occurrence: US)
  Receive Date: 20160812
  Receipt Date: 20180920
  Transmission Date: 20181010
  Serious: No
  Sender: FDA-Public Use
  Company Number: US-009507513-1607USA008389

PATIENT
  Age: 19 Year
  Sex: Female
  Weight: 92.06 kg

DRUGS (1)
  1. IMPLANON [Suspect]
     Active Substance: ETONOGESTREL
     Indication: CONTRACEPTION
     Dosage: 1 IMPLANT, LEFT ARM, EVERY 3 YEARS
     Route: 059
     Dates: start: 20120926

REACTIONS (4)
  - Headache [Not Recovered/Not Resolved]
  - Incorrect drug administration duration [Unknown]
  - Implant site pain [Not Recovered/Not Resolved]
  - Weight increased [Unknown]

NARRATIVE: CASE EVENT DATE: 20120926
